FAERS Safety Report 14814113 (Version 2)
Quarter: 2018Q2

REPORT INFORMATION
  Report Type: Spontaneous
  Country: JP (occurrence: JP)
  Receive Date: 20180426
  Receipt Date: 20180523
  Transmission Date: 20180711
  Serious: Yes (Other)
  Sender: FDA-Public Use
  Company Number: JP-BAYER-2018-075808

PATIENT

DRUGS (7)
  1. BAYASPIRIN 100 MG [Suspect]
     Active Substance: ASPIRIN
     Indication: PREMATURE DELIVERY
  2. HEPARIN [Concomitant]
     Active Substance: HEPARIN SODIUM
     Indication: HABITUAL ABORTION
     Route: 064
  3. PRAVASTATIN. [Concomitant]
     Active Substance: PRAVASTATIN
     Indication: GESTATIONAL HYPERTENSION
     Route: 064
  4. GLOBULIN N [IMMUNOGLOBULIN HUMAN NORMAL] [Concomitant]
     Route: 064
  5. BAYASPIRIN 100 MG [Suspect]
     Active Substance: ASPIRIN
     Indication: HABITUAL ABORTION
     Route: 064
  6. HEPARIN [Concomitant]
     Active Substance: HEPARIN SODIUM
     Indication: PREMATURE DELIVERY
  7. PREDNISOLONE. [Concomitant]
     Active Substance: PREDNISOLONE
     Indication: SYSTEMIC LUPUS ERYTHEMATOSUS
     Dosage: 15MG, DAILY
     Route: 064

REACTIONS (3)
  - Foetal exposure during pregnancy [None]
  - Foetal growth restriction [None]
  - Premature baby [None]
